FAERS Safety Report 17469811 (Version 4)
Quarter: 2020Q1

REPORT INFORMATION
  Report Type: Spontaneous
  Country: US (occurrence: US)
  Receive Date: 20200227
  Receipt Date: 20200317
  Transmission Date: 20200409
  Serious: No
  Sender: FDA-Public Use
  Company Number: US-009507513-2002USA008464

PATIENT
  Sex: Female

DRUGS (5)
  1. PREGNYL [Concomitant]
     Active Substance: CHORIOGONADOTROPIN ALFA
     Dosage: UNK
     Dates: start: 202002
  2. FOLLISTIM AQ [Suspect]
     Active Substance: FOLLITROPIN
     Dosage: 300 INTERNATIONAL UNIT
     Dates: start: 202002, end: 202002
  3. FOLLISTIM AQ [Suspect]
     Active Substance: FOLLITROPIN
     Dosage: 350 INTERNATIONAL UNIT
     Dates: start: 202002, end: 2020
  4. MENOPUR [Concomitant]
     Active Substance: FOLLITROPIN\LUTEINIZING HORMONE
     Dosage: UNK
     Dates: start: 202002
  5. GANIRELIX ACETATE INJECTION [Concomitant]
     Active Substance: GANIRELIX ACETATE
     Dosage: UNK
     Dates: start: 202002

REACTIONS (5)
  - Poor quality device used [Unknown]
  - Incorrect dose administered by device [Unknown]
  - Therapeutic response changed [Unknown]
  - Poor response to ovulation induction [Recovered/Resolved]
  - Product quality issue [Unknown]

NARRATIVE: CASE EVENT DATE: 202002
